FAERS Safety Report 18595716 (Version 1)
Quarter: 2020Q4

REPORT INFORMATION
  Report Type: Report from Study
  Country: PE (occurrence: PE)
  Receive Date: 20201208
  Receipt Date: 20201208
  Transmission Date: 20210114
  Serious: Yes (Hospitalization)
  Sender: FDA-Public Use
  Company Number: PE-JNJFOC-20200206678

PATIENT
  Age: 41 Year
  Sex: Female

DRUGS (1)
  1. SIMPONI [Suspect]
     Active Substance: GOLIMUMAB
     Indication: RHEUMATOID ARTHRITIS
     Route: 058
     Dates: start: 20181120, end: 20190917

REACTIONS (2)
  - Uterine polyp [Unknown]
  - Post procedural infection [Not Recovered/Not Resolved]

NARRATIVE: CASE EVENT DATE: 202009
